FAERS Safety Report 6814119-9 (Version None)
Quarter: 2010Q3

REPORT INFORMATION
  Report Type: 
  Country: None (occurrence: None)
  Receive Date: 20100702
  Receipt Date: 20100310
  Transmission Date: 20110219
  Serious: No
  Sender: FDA-Public Use
  Company Number: A0838033A

PATIENT
  Age: 71 Year
  Sex: Female
  Weight: 88.2 kg

DRUGS (6)
  1. ADVAIR DISKUS 100/50 [Suspect]
     Indication: CHRONIC OBSTRUCTIVE PULMONARY DISEASE
     Dosage: 2PUFF TWICE PER DAY
     Route: 055
     Dates: start: 20090101
  2. GLUCOSAMINE + CHONDROITIN [Concomitant]
  3. VITAMIN D [Concomitant]
  4. BENICAR HCT [Concomitant]
     Indication: HYPERTENSION
     Dosage: 1TAB PER DAY
     Route: 048
  5. PRAVASTATIN [Concomitant]
     Dosage: 1TAB PER DAY
     Route: 048
  6. NASONEX [Concomitant]
     Dosage: 1SPR TWICE PER DAY
     Route: 045
     Dates: start: 20091222, end: 20100111

REACTIONS (5)
  - DYSGEUSIA [None]
  - HAIR DISORDER [None]
  - ORAL CANDIDIASIS [None]
  - PRODUCT QUALITY ISSUE [None]
  - SKIN ODOUR ABNORMAL [None]
